FAERS Safety Report 21651892 (Version 1)
Quarter: 2022Q4

REPORT INFORMATION
  Report Type: Spontaneous
  Country: US (occurrence: None)
  Receive Date: 20221125
  Receipt Date: 20221125
  Transmission Date: 20230112
  Serious: Yes (Disabling)
  Sender: FDA-Public Use
  Company Number: None

PATIENT
  Age: 35 Year
  Sex: Female
  Weight: 113.85 kg

DRUGS (5)
  1. ENDOMETRIN [Suspect]
     Active Substance: PROGESTERONE
     Indication: In vitro fertilisation
     Dosage: OTHER QUANTITY : 21 INSERTS;?FREQUENCY : 3 TIMES A DAY;?
     Route: 067
  2. PROGESTERONE [Concomitant]
     Active Substance: PROGESTERONE
  3. PNV [Concomitant]
  4. TYLENOL [Concomitant]
     Active Substance: ACETAMINOPHEN
  5. MAGNESIUM [Concomitant]
     Active Substance: MAGNESIUM

REACTIONS (5)
  - Abdominal distension [None]
  - Abdominal pain [None]
  - Skin tightness [None]
  - Umbilical hernia [None]
  - Abdominal mass [None]

NARRATIVE: CASE EVENT DATE: 20221018
